FAERS Safety Report 23442789 (Version 1)
Quarter: 2024Q1

REPORT INFORMATION
  Report Type: Spontaneous
  Country: US (occurrence: US)
  Receive Date: 20240125
  Receipt Date: 20240125
  Transmission Date: 20240410
  Serious: Yes (Other)
  Sender: FDA-Public Use
  Company Number: US-009507513-2401USA014325

PATIENT
  Age: 58 Year
  Sex: Male

DRUGS (3)
  1. KEYTRUDA [Suspect]
     Active Substance: PEMBROLIZUMAB
     Indication: Neuroendocrine carcinoma of the skin
     Dosage: 200 MILLIGRAM, Q3W
     Route: 042
  2. ECULIZUMAB [Concomitant]
     Active Substance: ECULIZUMAB
     Dosage: 1200 MILLIGRAM, QOW
     Route: 042
  3. PREDNISONE [Concomitant]
     Active Substance: PREDNISONE
     Dosage: STARTING AT 15 MG, QD, TAPER DOSE

REACTIONS (1)
  - Retinal vasculitis [Recovering/Resolving]
